FAERS Safety Report 5340631-8 (Version None)
Quarter: 2007Q2

REPORT INFORMATION
  Report Type: 
  Country: None (occurrence: None)
  Receive Date: 20070405
  Receipt Date: 20061214
  Transmission Date: 20071010
  Serious: No
  Sender: FDA-Public Use
  Company Number: US200612002537

PATIENT
  Age: 52 Year
  Sex: Male

DRUGS (9)
  1. CYMBALTA [Suspect]
     Indication: PAIN
     Dosage: 60 MG, DAILY (1/D)
  2. PREGABALIN (PREGABALIN) [Concomitant]
  3. RELAFEN [Concomitant]
  4. RITALIN - SLOW RELEASE (METHYLPHENIDATE HYDROCHLORIDE) [Concomitant]
  5. DAPSONE [Concomitant]
  6. KLONOPIN [Concomitant]
  7. DURAGESIC-100 [Concomitant]
  8. TRAZODONE HCL [Concomitant]
  9. DARVOCET-N 100 [Concomitant]

REACTIONS (1)
  - ARTERIOSCLEROSIS [None]
